FAERS Safety Report 16657047 (Version 1)
Quarter: 2019Q3

REPORT INFORMATION
  Report Type: Report from Study
  Country: US (occurrence: US)
  Receive Date: 20190801
  Receipt Date: 20190801
  Transmission Date: 20191004
  Serious: Yes (Other)
  Sender: FDA-Public Use
  Company Number: US-ELI_LILLY_AND_COMPANY-US201907015031

PATIENT
  Age: 18 Year
  Sex: Female

DRUGS (2)
  1. RALOXIFENE HYDROCHLORIDE. [Suspect]
     Active Substance: RALOXIFENE HYDROCHLORIDE
     Indication: HYPERPROLACTINAEMIA
     Dosage: 60 MG, DAILY
     Route: 065
  2. CABERGOLINE. [Concomitant]
     Active Substance: CABERGOLINE
     Indication: HYPERPROLACTINAEMIA
     Dosage: 2 MG, WEEKLY (1/W)
     Route: 065

REACTIONS (2)
  - Blood prolactin increased [Unknown]
  - Off label use [Unknown]
